FAERS Safety Report 4421546-6 (Version None)
Quarter: 2004Q3

REPORT INFORMATION
  Report Type: 
  Country: None (occurrence: None)
  Receive Date: 20040804
  Receipt Date: 20040720
  Transmission Date: 20050211
  Serious: Yes (Hospitalization)
  Sender: FDA-Public Use
  Company Number: WAES 0312USA01756

PATIENT
  Age: 92 Year
  Sex: Male

DRUGS (12)
  1. COZAAR [Suspect]
     Indication: HYPERTENSION
     Dosage: 50 MG PO; PO
     Route: 048
     Dates: start: 20011212, end: 20031006
  2. COZAAR [Suspect]
     Indication: HYPERTENSION
     Dosage: 50 MG PO; PO
     Route: 048
     Dates: start: 20031021, end: 20031027
  3. ADALAT [Concomitant]
  4. AMOBAN [Concomitant]
  5. CEROCRAL [Concomitant]
  6. FRANDOL [Concomitant]
  7. ISOMENYL [Concomitant]
  8. NORVASC [Concomitant]
  9. DIGOXIN [Concomitant]
  10. DIMETHICONE [Concomitant]
  11. PICOSULFATE NA [Concomitant]
  12. SENNA [Concomitant]

REACTIONS (12)
  - ABDOMINAL PAIN UPPER [None]
  - BLOOD ELECTROLYTES ABNORMAL [None]
  - CARDIAC FAILURE CONGESTIVE [None]
  - CARDIOMEGALY [None]
  - DIZZINESS [None]
  - ELECTROCARDIOGRAM ST SEGMENT DEPRESSION [None]
  - HEADACHE [None]
  - HEPATIC CONGESTION [None]
  - HEPATIC FUNCTION ABNORMAL [None]
  - INAPPROPRIATE ANTIDIURETIC HORMONE SECRETION [None]
  - LIVER DISORDER [None]
  - MALAISE [None]
